FAERS Safety Report 13069898 (Version 2)
Quarter: 2017Q1

REPORT INFORMATION
  Report Type: Spontaneous
  Country: US (occurrence: US)
  Receive Date: 20161228
  Receipt Date: 20170126
  Transmission Date: 20170428
  Serious: Yes (Other)
  Sender: FDA-Public Use
  Company Number: US-SHIRE-US201619301

PATIENT
  Age: 59 Year
  Sex: Female
  Weight: 58.64 kg

DRUGS (2)
  1. XIIDRA [Suspect]
     Active Substance: LIFITEGRAST
     Indication: DRY EYE
     Dosage: 1 GTT (EACH EYE), 2X/DAY:BID
     Route: 047
     Dates: start: 20161212, end: 20161213
  2. SYNTHROID [Concomitant]
     Active Substance: LEVOTHYROXINE SODIUM
     Indication: THYROID DISORDER
     Dosage: 0.12 ?G, 1X/DAY:QD
     Route: 048

REACTIONS (5)
  - Periorbital oedema [Recovered/Resolved]
  - Swollen tongue [Recovered/Resolved]
  - Pruritus [Recovered/Resolved]
  - Rash generalised [Recovered/Resolved]
  - Hypersensitivity [Recovered/Resolved]

NARRATIVE: CASE EVENT DATE: 20161212
